FAERS Safety Report 7541979-9 (Version None)
Quarter: 2011Q2

REPORT INFORMATION
  Report Type: 
  Country: None (occurrence: None)
  Receive Date: 20110606
  Receipt Date: 20110525
  Transmission Date: 20111010
  Serious: Yes (Hospitalization, Congenital Anomaly, Other)
  Sender: FDA-Public Use
  Company Number: GER/GER/11/0018512

PATIENT
  Sex: Male
  Weight: 1.9995 kg

DRUGS (6)
  1. VOLTAREN [Suspect]
     Indication: DRUG EXPOSURE DURING PREGNANCY
     Dosage: 140 MG, 0 TO 27 GESTATIONAL WEEK, TRANSPLACENTAL
     Route: 064
  2. ACETAMINOPHEN [Concomitant]
  3. FOLIC ACID [Concomitant]
  4. IBUPROFEN [Suspect]
     Indication: DRUG EXPOSURE DURING PREGNANCY
     Dosage: 600 MG, 16-22 GESTATIONAL WEEKS, TRANSPLACENTAL
     Route: 064
  5. DECORTIN-H (PREDNISOLONE) [Suspect]
     Indication: DRUG EXPOSURE DURING PREGNANCY
     Dosage: SEE IMAGE
  6. HUMIRA [Concomitant]

REACTIONS (6)
  - CRYPTORCHISM [None]
  - MATERNAL DRUGS AFFECTING FOETUS [None]
  - DUCTUS ARTERIOSUS STENOSIS FOETAL [None]
  - SMALL FOR DATES BABY [None]
  - HYPERBILIRUBINAEMIA NEONATAL [None]
  - PREMATURE BABY [None]
